FAERS Safety Report 7111052-2 (Version None)
Quarter: 2010Q4

REPORT INFORMATION
  Report Type: 
  Country: None (occurrence: None)
  Receive Date: 20101118
  Receipt Date: 20101108
  Transmission Date: 20110411
  Serious: Yes (Other)
  Sender: FDA-Public Use
  Company Number: US-JNJFOC-20100708750

PATIENT
  Sex: Male
  Weight: 74.84 kg

DRUGS (3)
  1. INVEGA [Suspect]
     Indication: SCHIZOPHRENIA
     Route: 048
  2. COGENTIN [Concomitant]
     Indication: PROPHYLAXIS
  3. KLONOPIN [Concomitant]
     Indication: SCHIZOPHRENIA

REACTIONS (9)
  - ABDOMINAL PAIN UPPER [None]
  - ACNE [None]
  - COLITIS [None]
  - DIARRHOEA [None]
  - GINGIVAL DISCOLOURATION [None]
  - LOSS OF CONSCIOUSNESS [None]
  - NAUSEA [None]
  - ULCER [None]
  - VOMITING [None]
